FAERS Safety Report 5270621-5 (Version None)
Quarter: 2007Q1

REPORT INFORMATION
  Report Type: 
  Country: None (occurrence: None)
  Receive Date: 20061213
  Receipt Date: 20031119
  Transmission Date: 20070707
  Serious: Yes (Other)
  Sender: FDA-Public Use
  Company Number: 2003UW15288

PATIENT
  Age: 71 Year
  Sex: Female
  Weight: 75.2971 kg

DRUGS (4)
  1. IRESSA [Suspect]
     Indication: LUNG NEOPLASM MALIGNANT
     Dosage: 250 MG PO
     Route: 048
     Dates: start: 20030901
  2. SYNTHROID [Concomitant]
  3. TOPROL-XL [Concomitant]
  4. MAXIDEX [Concomitant]

REACTIONS (3)
  - ACNE [None]
  - AGEUSIA [None]
  - DRY SKIN [None]
